FAERS Safety Report 5027950-X (Version None)
Quarter: 2006Q2

REPORT INFORMATION
  Report Type: 
  Country: None (occurrence: None)
  Receive Date: 20060501
  Receipt Date: 20060302
  Transmission Date: 20061013
  Serious: Yes (Other)
  Sender: FDA-Public Use
  Company Number: 200612016US

PATIENT
  Age: 70 Year
  Sex: Male

DRUGS (4)
  1. KETEK [Suspect]
     Indication: PNEUMONIA
     Dates: start: 20060114, end: 20060214
  2. COUMADIN [Suspect]
  3. SIMVASTATIN [Concomitant]
  4. PAROXETINE HCL [Concomitant]

REACTIONS (1)
  - INTERNATIONAL NORMALISED RATIO INCREASED [None]
